FAERS Safety Report 10673471 (Version 8)
Quarter: 2016Q4

REPORT INFORMATION
  Report Type: Spontaneous
  Country: US (occurrence: US)
  Receive Date: 20141224
  Receipt Date: 20161021
  Transmission Date: 20170206
  Serious: Yes (Hospitalization, Other)
  Sender: FDA-Public Use
  Company Number: US-PFIZER INC-2014350849

PATIENT
  Age: 73 Year
  Sex: Female
  Weight: 81.63 kg

DRUGS (40)
  1. METOPROLOL. [Concomitant]
     Active Substance: METOPROLOL
     Indication: HYPERTENSION
     Dosage: 50 MG, 1X/DAY
     Route: 048
  2. DIAZEPAM. [Concomitant]
     Active Substance: DIAZEPAM
     Indication: PAIN
     Dosage: UNK
     Route: 067
  3. CRANBERRY. [Concomitant]
     Active Substance: CRANBERRY
     Dosage: 75 MG, DAILY
  4. CRANBERRY. [Concomitant]
     Active Substance: CRANBERRY
     Dosage: 450 MG, 2X/DAY
     Route: 048
     Dates: start: 20130829
  5. PROBIOTICS [Concomitant]
     Active Substance: PROBIOTICS NOS
     Dosage: 100MIL, 1 ORALLY DAILY
     Route: 048
  6. MYRBETRIQ [Concomitant]
     Active Substance: MIRABEGRON
     Dosage: 50 MG, 1X/DAY
     Route: 048
  7. LYRICA [Suspect]
     Active Substance: PREGABALIN
     Indication: FIBROMYALGIA
     Dosage: 100 MG, 2X/DAY
  8. LYRICA [Suspect]
     Active Substance: PREGABALIN
     Indication: DIABETIC NEUROPATHY
     Dosage: 100 MG, 2X/DAY
     Route: 048
     Dates: start: 20141010
  9. METFORMIN [Concomitant]
     Active Substance: METFORMIN HYDROCHLORIDE
     Indication: DIABETES MELLITUS
     Dosage: UNK
  10. CLINDAMYCIN PHOSPHATE. [Concomitant]
     Active Substance: CLINDAMYCIN PHOSPHATE
     Dosage: UNK
  11. FLAXSEED [Concomitant]
     Active Substance: FLAX SEED
     Dosage: 1000 MG, 1X/DAY
  12. METOPROLOL SUCCINATE. [Concomitant]
     Active Substance: METOPROLOL SUCCINATE
     Dosage: 50 MG, 1X/DAY
     Route: 048
  13. AMLODIPINE [Concomitant]
     Active Substance: AMLODIPINE BESYLATE
     Indication: HYPERTENSION
     Dosage: 10 MG, 1X/DAY
  14. BENAZEPRIL HCL [Concomitant]
     Active Substance: BENAZEPRIL HYDROCHLORIDE
     Dosage: 10 MG, 1X/DAY
     Route: 048
  15. ZOLPIDEM TARTRATE. [Concomitant]
     Active Substance: ZOLPIDEM TARTRATE
     Dosage: 10 MG, AS NEEDED (1 TABLET AT BEDTIME AS NEEDED ORALLY ONCE A DAY)
     Route: 048
  16. METFORMIN HCL [Concomitant]
     Active Substance: METFORMIN HYDROCHLORIDE
     Dosage: 500 MG, 3X/DAY (WITH FOOD 3 TIMES A DAY)
  17. OXYBUTYNIN [Concomitant]
     Active Substance: OXYBUTYNIN
     Indication: BLADDER DISORDER
     Dosage: 10 MG, 2X/DAY
  18. PERCOCET [Concomitant]
     Active Substance: ACETAMINOPHEN\OXYCODONE HYDROCHLORIDE
     Dosage: 1 DF, AS NEEDED (OXYCODONE HYDROCHLORIDE : 5 MG, PARACETAMOL: 325MG)/1 TABLET AS NEEDED EVERY 8HRS
     Route: 048
  19. VITAMIN D3 [Concomitant]
     Active Substance: CHOLECALCIFEROL
     Dosage: 2000 IU, 1X/DAY
     Route: 048
  20. LYRICA [Suspect]
     Active Substance: PREGABALIN
     Indication: HERPES ZOSTER
     Dosage: UNK
  21. CLINDAMYCIN PHOSPHATE AND BENZOYL PEROXIDE [Concomitant]
     Active Substance: BENZOYL PEROXIDE\CLINDAMYCIN PHOSPHATE
     Dosage: 1 APPLICATION TO AFFECT+ AREA EXTERNAIIY TWICE A DAY
  22. DONEPEZIL. [Concomitant]
     Active Substance: DONEPEZIL
     Indication: MEMORY IMPAIRMENT
     Dosage: UNK, 1X/DAY IN THE EVENING
  23. BENZOYL PEROXIDE. [Concomitant]
     Active Substance: BENZOYL PEROXIDE
     Dosage: UNK
  24. FLAXSEED [Concomitant]
     Active Substance: FLAX SEED
     Dosage: 1000 MG, DAILY
     Route: 048
     Dates: start: 20121215
  25. VITAMIN D [Concomitant]
     Active Substance: CHOLECALCIFEROL
     Dosage: UNK
  26. ONE TOUCH [Concomitant]
     Dosage: 1 DF, 2X/DAY
     Dates: start: 20140306
  27. METAMUCIL [Concomitant]
     Active Substance: PLANTAGO SEED
     Dosage: 1 DF, DAILY (1 CAPSULE BY MOUTH DAILY)
     Route: 048
  28. ESTRACE [Concomitant]
     Active Substance: ESTRADIOL
     Dosage: 0.1 MG/GM CREAM, VAGINAL M, W, F
     Route: 067
  29. ARICEPT [Suspect]
     Active Substance: DONEPEZIL HYDROCHLORIDE
     Dosage: 10 MG, 1X/DAY (1 TABLET AT BEDTIME ORALLY ONCE A DAY)
     Route: 048
     Dates: start: 20150701
  30. CYMBALTA [Concomitant]
     Active Substance: DULOXETINE HYDROCHLORIDE
     Dosage: 60 MG, 2X/DAY
     Route: 048
     Dates: start: 20140408
  31. ZOLPIDEM [Concomitant]
     Active Substance: ZOLPIDEM\ZOLPIDEM TARTRATE
     Dosage: 10 MG, 1X/DAY AT BED TIME AT NIGHT
     Route: 048
  32. MULTIVITAMINS [Concomitant]
     Active Substance: VITAMINS
     Dosage: UNK
  33. ONE TOUCH [Concomitant]
     Dosage: UNK UNK, 2X/DAY (AS DIRECTED IN VITRO BID)
     Dates: start: 20150701
  34. ZOCOR [Concomitant]
     Active Substance: SIMVASTATIN
     Dosage: 20 MG, 1X/DAY (1 TABLET IN THE EVENING ORALLY ONCE A DAY)
     Route: 048
     Dates: start: 20151117
  35. LYRICA [Suspect]
     Active Substance: PREGABALIN
     Indication: FIBROMYALGIA
  36. HYDROCODONE-ACETAMINOPHEN [Concomitant]
     Active Substance: ACETAMINOPHEN\HYDROCODONE
     Indication: PAIN
     Dosage: UNK
  37. SYSTANE (HYPROMELLOSE 2910 (4000 MPA.S)) [Concomitant]
     Active Substance: HYPROMELLOSE 2910 (4000 MPA.S)
     Indication: DRY EYE
     Dosage: 1 APPLICATION BOTH EYES AT BEDTIME
  38. NORVASC [Concomitant]
     Active Substance: AMLODIPINE BESYLATE
     Dosage: 5 MG, 1X/DAY(10 MG TABLET, 1/2 TAB ONCE A DAY )
     Route: 048
     Dates: start: 20150701
  39. PROBIOTIC [Concomitant]
     Active Substance: PROBIOTICS NOS
     Dosage: 100MIL, 1 ORALLY DAILY
     Route: 048
  40. HYDROXYZINE HCL [Concomitant]
     Active Substance: HYDROXYZINE HYDROCHLORIDE
     Dosage: 10 MG TABLET, 1/2 TAB
     Route: 048

REACTIONS (25)
  - Hydrocephalus [Unknown]
  - Fall [Unknown]
  - Pain [Unknown]
  - Blister [Unknown]
  - Malaise [Unknown]
  - Weight increased [Unknown]
  - Visual impairment [Not Recovered/Not Resolved]
  - Body height decreased [Unknown]
  - Urticaria [Unknown]
  - Musculoskeletal stiffness [Unknown]
  - Ligament sprain [Unknown]
  - Urinary tract infection [Unknown]
  - Amnesia [Not Recovered/Not Resolved]
  - Pruritus [Unknown]
  - Disturbance in attention [Unknown]
  - Cystitis [Unknown]
  - Back pain [Unknown]
  - Somnolence [Unknown]
  - Visual acuity reduced [Unknown]
  - Rash [Unknown]
  - Eyelid disorder [Unknown]
  - Thoracic vertebral fracture [Unknown]
  - Vision blurred [Unknown]
  - Bronchitis [Unknown]
  - Chest pain [Unknown]

NARRATIVE: CASE EVENT DATE: 201403
